FAERS Safety Report 9378423 (Version 2)
Quarter: 2013Q3

REPORT INFORMATION
  Report Type: Spontaneous
  Country: JP (occurrence: JP)
  Receive Date: 20130701
  Receipt Date: 20130711
  Transmission Date: 20140515
  Serious: Yes (Hospitalization)
  Sender: FDA-Public Use
  Company Number: JP-UCBSA-089116

PATIENT
  Age: 81 Year
  Sex: Female
  Weight: 37.6 kg

DRUGS (9)
  1. E KEPPRA [Suspect]
     Indication: EPILEPSY
     Route: 048
     Dates: start: 20100222, end: 20130504
  2. E KEPPRA [Suspect]
     Indication: EPILEPSY
     Route: 048
     Dates: start: 20130508, end: 20130516
  3. DEPAKENE-R [Concomitant]
     Indication: EPILEPSY
     Dosage: DAILY DOSE-400 MG
     Route: 048
     Dates: start: 200008
  4. NEXIUM [Concomitant]
     Indication: PEPTIC ULCER
     Dosage: DAILY DOSE-20 MG
     Route: 048
     Dates: start: 20130508
  5. BAYASPIRIN [Concomitant]
     Indication: CEREBRAL INFARCTION
     Dosage: DAILY DOSE-100 MG
     Route: 048
     Dates: start: 20130508
  6. PHYSIO 140 [Concomitant]
     Indication: CEREBRAL INFARCTION
     Dosage: DAILY DOSE-1000 ML
     Route: 042
     Dates: start: 20130508, end: 20130513
  7. NOVO HEPARIN [Concomitant]
     Indication: CEREBRAL INFARCTION
     Dosage: DAILY DOSE-10 KIU
     Route: 042
     Dates: start: 20130505, end: 20130513
  8. ISOTONIC SODIUM CHLORIDE SOLUTION [Concomitant]
     Indication: CEREBRAL INFARCTION
     Dosage: DAILY DOSE-80 ML
     Route: 042
     Dates: start: 20130505, end: 20130513
  9. CEFTRIAXONE SODIUM HYDRATE [Concomitant]
     Indication: URINARY TRACT INFECTION
     Dosage: DAILY DOSE-2 G
     Route: 042
     Dates: start: 20130509, end: 20130513

REACTIONS (5)
  - Cerebral infarction [Unknown]
  - Urinary tract infection [Unknown]
  - Bradycardia [Unknown]
  - Pyrexia [Recovered/Resolved]
  - C-reactive protein increased [Recovered/Resolved]
